FAERS Safety Report 6828484-X (Version None)
Quarter: 2010Q3

REPORT INFORMATION
  Report Type: 
  Country: None (occurrence: None)
  Receive Date: 20100709
  Receipt Date: 20070209
  Transmission Date: 20110219
  Serious: Yes (Other)
  Sender: FDA-Public Use
  Company Number: US-PFIZER INC-2007011772

PATIENT
  Sex: Male
  Weight: 70.3 kg

DRUGS (1)
  1. CHANTIX [Suspect]
     Indication: EX-TOBACCO USER
     Route: 048
     Dates: start: 20070207

REACTIONS (6)
  - AGITATION [None]
  - CONFUSIONAL STATE [None]
  - DISTRACTIBILITY [None]
  - EUPHORIC MOOD [None]
  - HANGOVER [None]
  - POVERTY OF THOUGHT CONTENT [None]
